FAERS Safety Report 8919267 (Version 2)
Quarter: 2012Q4

REPORT INFORMATION
  Report Type: 
  Country: JP (occurrence: JP)
  Receive Date: 20121121
  Receipt Date: 20121127
  Transmission Date: 20130627
  Serious: Yes (Other)
  Sender: FDA-Public Use
  Company Number: JP-PFIZER INC-2012271926

PATIENT
  Age: 31 Year
  Sex: Female
  Weight: 35.7 kg

DRUGS (6)
  1. GABAPEN [Suspect]
     Indication: CONVULSION
     Dosage: 200 mg, 3x/day
     Route: 048
     Dates: start: 20120915, end: 20121019
  2. ALEVIATIN [Concomitant]
     Indication: CONVULSION
     Dosage: 110 mg, 2x/day
     Route: 048
  3. MYSTAN [Concomitant]
     Indication: CONVULSION
     Dosage: 14 mg, 2x/day
     Route: 048
  4. SELENICA-R [Concomitant]
     Indication: CONVULSION
     Dosage: 250 mg in the morning, 350 mg in the evening, daily
     Route: 048
  5. LEXIN [Concomitant]
     Indication: CONVULSION
     Dosage: 400 mg, daily
     Route: 048
     Dates: end: 200705
  6. LEXIN [Concomitant]
     Dosage: 167 mg, 3x/day
     Route: 048
     Dates: start: 200705

REACTIONS (3)
  - Oliguria [Recovering/Resolving]
  - Neurogenic bladder [Recovering/Resolving]
  - Somnolence [Unknown]
